FAERS Safety Report 9378146 (Version 4)
Quarter: 2013Q4

REPORT INFORMATION
  Report Type: Spontaneous
  Country: GB (occurrence: GB)
  Receive Date: 20130701
  Receipt Date: 20131212
  Transmission Date: 20140711
  Serious: Yes (Hospitalization)
  Sender: FDA-Public Use
  Company Number: GB-GLAXOSMITHKLINE-B0902586A

PATIENT
  Sex: Male
  Weight: 77.6 kg

DRUGS (8)
  1. AVANDIA [Suspect]
     Indication: PRODUCT USED FOR UNKNOWN INDICATION
     Dosage: 8MG PER DAY
     Route: 065
  2. AVANDAMET [Suspect]
     Indication: TYPE 2 DIABETES MELLITUS
     Route: 048
     Dates: start: 20100322, end: 20100913
  3. GLICLAZIDE [Concomitant]
     Route: 065
     Dates: start: 20100322
  4. METFORMIN [Concomitant]
     Dosage: 1000MG TWICE PER DAY
     Dates: start: 20100913, end: 20110317
  5. ASPIRIN [Concomitant]
  6. IRBESARTAN [Concomitant]
  7. SIMVASTATIN [Concomitant]
  8. COMPETACT (PIOGLITAZONE + METFORMIN HYDROCHLORIDE) [Concomitant]
     Dates: start: 20110317

REACTIONS (1)
  - Arterial stenosis [Unknown]
